FAERS Safety Report 19417795 (Version 3)
Quarter: 2021Q3

REPORT INFORMATION
  Report Type: Spontaneous
  Country: US (occurrence: US)
  Receive Date: 20210615
  Receipt Date: 20210808
  Transmission Date: 20211014
  Serious: No
  Sender: FDA-Public Use
  Company Number: US-GLAXOSMITHKLINE-US2021125166

PATIENT
  Sex: Female

DRUGS (1)
  1. BREO ELLIPTA [Suspect]
     Active Substance: FLUTICASONE FUROATE\VILANTEROL TRIFENATATE
     Indication: PRODUCT USED FOR UNKNOWN INDICATION
     Dosage: 1 PUFF(S), QD, (100/25)
     Route: 055

REACTIONS (3)
  - Cough [Unknown]
  - Device use error [Unknown]
  - Product complaint [Unknown]
